FAERS Safety Report 6214017-8 (Version None)
Quarter: 2009Q2

REPORT INFORMATION
  Report Type: 
  Country: None (occurrence: None)
  Receive Date: 20090604
  Receipt Date: 20090504
  Transmission Date: 20091009
  Serious: No
  Sender: FDA-Public Use
  Company Number: US-JNJFOC-20090501078

PATIENT
  Age: 16 Year
  Sex: Male
  Weight: 81.65 kg

DRUGS (3)
  1. INVEGA [Suspect]
     Route: 048
  2. INVEGA [Suspect]
     Route: 048
  3. INVEGA [Suspect]
     Indication: PARANOIA
     Route: 048

REACTIONS (2)
  - INCREASED APPETITE [None]
  - WEIGHT INCREASED [None]
